FAERS Safety Report 7588709-2 (Version None)
Quarter: 2011Q3

REPORT INFORMATION
  Report Type: 
  Country: None (occurrence: None)
  Receive Date: 20110705
  Receipt Date: 20110606
  Transmission Date: 20111222
  Serious: Yes (Hospitalization, Other)
  Sender: FDA-Public Use
  Company Number: US-BAYER-2011-033974

PATIENT
  Age: 27 Year
  Sex: Female
  Weight: 113.38 kg

DRUGS (3)
  1. HYDROXYZINE [Concomitant]
     Dosage: 50 MG, UNK
     Route: 048
     Dates: start: 20070804
  2. YAZ [Suspect]
     Indication: CONTRACEPTION
     Dosage: UNK
     Route: 048
     Dates: start: 20061101, end: 20090901
  3. YAZ [Suspect]
     Indication: ACNE

REACTIONS (6)
  - CHOLELITHIASIS [None]
  - INJURY [None]
  - ABDOMINAL PAIN [None]
  - CHOLECYSTITIS CHRONIC [None]
  - JAUNDICE [None]
  - PAIN [None]
